FAERS Safety Report 10302291 (Version 1)
Quarter: 2014Q3

REPORT INFORMATION
  Report Type: Spontaneous
  Country: US (occurrence: US)
  Receive Date: 20140714
  Receipt Date: 20140714
  Transmission Date: 20150326
  Serious: No
  Sender: FDA-Public Use
  Company Number: US-BAUSCH-BL-2013-004907

PATIENT
  Age: 83 Year
  Sex: Male

DRUGS (4)
  1. XARELTO [Suspect]
     Active Substance: RIVAROXABAN
     Indication: PRODUCT USED FOR UNKNOWN INDICATION
     Dosage: UNKNOWN DOSE; ORAL
     Route: 048
  2. BESIVANCE [Suspect]
     Active Substance: BESIFLOXACIN
     Indication: POSTOPERATIVE CARE
     Dosage: UNKNOWN DOSE; OPHTHALMIC
     Route: 047
     Dates: start: 20130820
  3. PROLENSA [Suspect]
     Active Substance: BROMFENAC SODIUM
     Dosage: ONE DROP INTO LEFT EYE DAILY
     Route: 047
     Dates: start: 20130820
  4. PROLENSA [Suspect]
     Active Substance: BROMFENAC SODIUM
     Indication: POSTOPERATIVE CARE
     Dosage: ONE DROP INTO RIGHT EYE DAILY
     Route: 047
     Dates: start: 20130820

REACTIONS (4)
  - Dyspnoea [Recovered/Resolved]
  - Off label use [Recovered/Resolved]
  - Dizziness [Recovered/Resolved]
  - Headache [Recovered/Resolved]

NARRATIVE: CASE EVENT DATE: 20130821
